FAERS Safety Report 9855435 (Version 1)
Quarter: 2014Q1

REPORT INFORMATION
  Report Type: Spontaneous
  Country: CH (occurrence: CH)
  Receive Date: 20140130
  Receipt Date: 20140130
  Transmission Date: 20141002
  Serious: Yes (Other)
  Sender: FDA-Public Use
  Company Number: CH-TEVA-459730ISR

PATIENT
  Age: 41 Year
  Sex: Male

DRUGS (2)
  1. QUETIAPINE [Suspect]
     Dosage: 15 GRAM DAILY; 50 XR TABLETS, 15G, CONTROLLED RELEASE
     Route: 048
  2. ALCOHOL [Concomitant]
     Route: 048

REACTIONS (8)
  - Bezoar [Recovering/Resolving]
  - Overdose [Recovering/Resolving]
  - Agitation [Recovering/Resolving]
  - Somnolence [Recovering/Resolving]
  - Tachycardia [Recovering/Resolving]
  - Depressed level of consciousness [Recovering/Resolving]
  - Dysarthria [Recovering/Resolving]
  - Dyskinesia [Recovering/Resolving]
